FAERS Safety Report 17691398 (Version 2)
Quarter: 2020Q2

REPORT INFORMATION
  Report Type: Spontaneous
  Country: US (occurrence: US)
  Receive Date: 20200422
  Receipt Date: 20200422
  Transmission Date: 20200714
  Serious: No
  Sender: FDA-Public Use
  Company Number: US-ALLERGAN-1921444US

PATIENT
  Age: 61 Year
  Sex: Female
  Weight: 71.21 kg

DRUGS (8)
  1. CRANBERRY. [Concomitant]
     Active Substance: CRANBERRY
     Indication: SUPPLEMENTATION THERAPY
     Dosage: UNK
     Route: 048
  2. MAGNESIUM [Concomitant]
     Active Substance: MAGNESIUM
     Indication: SUPPLEMENTATION THERAPY
     Dosage: UNK
     Route: 048
  3. ZETIA [Concomitant]
     Active Substance: EZETIMIBE
     Indication: BLOOD CHOLESTEROL
     Dosage: UNK
     Route: 048
  4. CALCIUM [Concomitant]
     Active Substance: CALCIUM
     Indication: SUPPLEMENTATION THERAPY
     Dosage: UNK
     Route: 048
  5. RANITIDINE. [Concomitant]
     Active Substance: RANITIDINE
     Dosage: UNK, PRN
     Route: 048
  6. RISEDRONATE SODIUM - BP [Suspect]
     Active Substance: RISEDRONATE SODIUM
     Indication: OSTEOPOROSIS POSTMENOPAUSAL
     Dosage: 35 MG, Q WEEK
     Route: 048
     Dates: start: 2019, end: 2019
  7. OMEPRAZOLE. [Concomitant]
     Active Substance: OMEPRAZOLE
     Indication: GASTROOESOPHAGEAL REFLUX DISEASE
     Dosage: UNK, PRN
     Route: 048
  8. MULITVITAMIN [Concomitant]
     Indication: VITAMIN SUPPLEMENTATION
     Dosage: UNK, QD
     Route: 048

REACTIONS (13)
  - Vomiting [Recovered/Resolved]
  - Pain in extremity [Recovering/Resolving]
  - Abdominal discomfort [Unknown]
  - Back pain [Unknown]
  - Feeling abnormal [Recovering/Resolving]
  - Pain [Unknown]
  - Diarrhoea [Unknown]
  - Spinal pain [Unknown]
  - Arthralgia [Recovering/Resolving]
  - Weight decreased [Unknown]
  - Myalgia [Recovered/Resolved]
  - Pyrexia [Unknown]
  - Nausea [Unknown]

NARRATIVE: CASE EVENT DATE: 20190517
